FAERS Safety Report 21583063 (Version 1)
Quarter: 2022Q4

REPORT INFORMATION
  Report Type: Report from Study
  Country: US (occurrence: US)
  Receive Date: 20221111
  Receipt Date: 20221111
  Transmission Date: 20230113
  Serious: Yes (Hospitalization)
  Sender: FDA-Public Use
  Company Number: US-MYLANLABS-2022M1123629

PATIENT
  Sex: Male
  Weight: 87.09 kg

DRUGS (11)
  1. AMLODIPINE [Suspect]
     Active Substance: AMLODIPINE BESYLATE
     Indication: Blood pressure measurement
     Dosage: 5 MILLIGRAM, HS (5MG TABLET ONE AT NIGHT)
     Route: 065
  2. RAPAMUNE [Suspect]
     Active Substance: SIROLIMUS
     Indication: Prophylaxis
     Dosage: 1 MILLIGRAM
     Route: 065
     Dates: start: 20160327
  3. POTASSIUM CHLORIDE [Concomitant]
     Active Substance: POTASSIUM CHLORIDE
     Indication: Blood potassium decreased
     Dosage: UNK UNK, QD (CRYS 30; 1 A DAY)
     Route: 065
  4. MAGNESIUM OXIDE [Concomitant]
     Active Substance: MAGNESIUM OXIDE
     Indication: Magnesium deficiency
     Dosage: 250 MILLIGRAM, QD (400; 240MG 1 TABLET A DAY)
     Route: 065
  5. SERTRALINE HYDROCHLORIDE [Concomitant]
     Active Substance: SERTRALINE HYDROCHLORIDE
     Indication: Fasting
     Dosage: 100 MILLIGRAM, BID (100MG TABLETS; 2 A DAY)
     Route: 065
  6. LISINOPRIL [Concomitant]
     Active Substance: LISINOPRIL
     Indication: Blood pressure measurement
     Dosage: 40 MILLIGRAM, PM (40MG IN THE EVENING)
     Route: 065
  7. PRAVASTATIN SODIUM [Concomitant]
     Active Substance: PRAVASTATIN SODIUM
     Indication: Prophylaxis
     Dosage: 20 MILLIGRAM, QD (20MG; ONE A DAY IN EVENING)
     Route: 065
  8. METOPROLOL SUCCINATE [Concomitant]
     Active Substance: METOPROLOL SUCCINATE
     Indication: Blood pressure measurement
     Dosage: 50 MILLIGRAM, BID (ER HR 50MG TABLETS; 2 A DAY)
     Route: 065
  9. LEVOTHYROXINE SODIUM [Concomitant]
     Active Substance: LEVOTHYROXINE SODIUM
     Indication: Product used for unknown indication
     Dosage: 75 MILLIGRAM, AM(75MG IN THE MORNING ON EMPTY STOMACH)
     Route: 065
  10. CYCLOSPORINE [Concomitant]
     Active Substance: CYCLOSPORINE
     Dosage: 75 MILLIGRAM, PM (AT NIGHT)
     Route: 065
  11. CYCLOSPORINE [Concomitant]
     Active Substance: CYCLOSPORINE
     Dosage: 75 MILLIGRAM, AM (AT MORNING)
     Route: 065

REACTIONS (6)
  - Vertigo [Unknown]
  - Dizziness [Unknown]
  - Nausea [Unknown]
  - Hypotension [Unknown]
  - Swelling [Unknown]
  - Product dose omission issue [Unknown]
